FAERS Safety Report 11026288 (Version 3)
Quarter: 2016Q2

REPORT INFORMATION
  Report Type: Spontaneous
  Country: JP (occurrence: JP)
  Receive Date: 20150414
  Receipt Date: 20160420
  Transmission Date: 20160815
  Serious: Yes (Hospitalization)
  Sender: FDA-Public Use
  Company Number: JP-SA-2015SA046630

PATIENT
  Age: 76 Year
  Sex: Male

DRUGS (2)
  1. ONETAXOTERE [Suspect]
     Active Substance: DOCETAXEL
     Indication: PROSTATE CANCER
     Dosage: FREQUENCY^EVERY 3 OR 4 WEEKS^; STRENGTH: 80 MG AND 20 MG
     Route: 042
     Dates: start: 20150318, end: 20150318
  2. DECADRON [Concomitant]
     Active Substance: DEXAMETHASONE
     Dates: start: 20150318, end: 20150318

REACTIONS (2)
  - Seizure [Not Recovered/Not Resolved]
  - Cerebral haemorrhage [Not Recovered/Not Resolved]

NARRATIVE: CASE EVENT DATE: 20150407
